FAERS Safety Report 8321841-4 (Version None)
Quarter: 2012Q2

REPORT INFORMATION
  Report Type: 
  Country: None (occurrence: None)
  Receive Date: 20120430
  Receipt Date: 20120418
  Transmission Date: 20120825
  Serious: Yes (Other)
  Sender: FDA-Public Use
  Company Number: BR-GLAXOSMITHKLINE-A0975341A

PATIENT
  Sex: Female
  Weight: 30 kg

DRUGS (4)
  1. FLUTICASONE FUROATE [Concomitant]
     Indication: PRODUCT USED FOR UNKNOWN INDICATION
     Dosage: 1PUFF AS REQUIRED
     Route: 045
     Dates: start: 20040101
  2. ALLERGY VACCINE [Suspect]
     Indication: PRODUCT USED FOR UNKNOWN INDICATION
     Route: 065
  3. FLUTICASONE PROPIONATE/SALMETEROL [Suspect]
     Indication: ASTHMA
     Dosage: 1PUFF TWICE PER DAY
     Route: 055
     Dates: start: 20101001
  4. DESLORATADINE [Concomitant]
     Indication: PRODUCT USED FOR UNKNOWN INDICATION
     Dosage: 5ML TWICE PER DAY
     Route: 065
     Dates: start: 20100101

REACTIONS (3)
  - NASOPHARYNGITIS [None]
  - PHARYNGITIS [None]
  - ASTHMATIC CRISIS [None]
